FAERS Safety Report 9206208 (Version 1)
Quarter: 2013Q2

REPORT INFORMATION
  Report Type: Spontaneous
  Country: US (occurrence: None)
  Receive Date: 20130401
  Receipt Date: 20130401
  Transmission Date: 20140414
  Serious: Yes (Other)
  Sender: FDA-Public Use
  Company Number: 2013-033357

PATIENT
  Age: 85 Year
  Sex: Female

DRUGS (1)
  1. AFLIBERCEPT (AFLIBERCEPT) SOLUTION FOR INJECTION [Suspect]
     Dates: start: 20130220

REACTIONS (1)
  - Diplopia [None]
